FAERS Safety Report 21076672 (Version 3)
Quarter: 2022Q3

REPORT INFORMATION
  Report Type: Report from Study
  Country: US (occurrence: US)
  Receive Date: 20220713
  Receipt Date: 20220822
  Transmission Date: 20221027
  Serious: Yes (Hospitalization, Other)
  Sender: FDA-Public Use
  Company Number: US-TAKEDA-2022TUS046104

PATIENT
  Age: 31 Year
  Sex: Male
  Weight: 101.59 kg

DRUGS (33)
  1. HUMAN IMMUNOGLOBULIN G [Suspect]
     Active Substance: HUMAN IMMUNOGLOBULIN G
     Indication: Multiple congenital abnormalities
     Dosage: 400 MILLIGRAM/KILOGRAM, 1/WEEK
     Route: 042
     Dates: start: 20220517
  2. HUMAN IMMUNOGLOBULIN G [Suspect]
     Active Substance: HUMAN IMMUNOGLOBULIN G
     Indication: Autonomic neuropathy
  3. HUMAN IMMUNOGLOBULIN G [Suspect]
     Active Substance: HUMAN IMMUNOGLOBULIN G
     Indication: Impaired gastric emptying
  4. ACETAMINOPHEN [Concomitant]
     Active Substance: ACETAMINOPHEN
  5. DIPHENHYDRAMINE [Concomitant]
     Active Substance: DIPHENHYDRAMINE
  6. LIDOCAINE [Concomitant]
     Active Substance: LIDOCAINE
  7. SODIUM CHLORIDE [Concomitant]
     Active Substance: SODIUM CHLORIDE
  8. SODIUM CHLORIDE [Concomitant]
     Active Substance: SODIUM CHLORIDE
  9. EPINEPHRINE [Concomitant]
     Active Substance: EPINEPHRINE
  10. LANTUS [Concomitant]
     Active Substance: INSULIN GLARGINE
  11. METOCLOPRAMIDE [Concomitant]
     Active Substance: METOCLOPRAMIDE
  12. LISINOPRIL [Concomitant]
     Active Substance: LISINOPRIL
  13. FAMOTIDINE [Concomitant]
     Active Substance: FAMOTIDINE
  14. DULOXETINE [Concomitant]
     Active Substance: DULOXETINE
  15. MIRTAZAPINE [Concomitant]
     Active Substance: MIRTAZAPINE
  16. AMLODIPINE [Concomitant]
     Active Substance: AMLODIPINE BESYLATE
  17. VALACYCLOVIR [Concomitant]
     Active Substance: VALACYCLOVIR HYDROCHLORIDE
  18. PANTOPRAZOLE [Concomitant]
     Active Substance: PANTOPRAZOLE
  19. MOTEGRITY [Concomitant]
     Active Substance: PRUCALOPRIDE SUCCINATE
  20. ONDANSETRON [Concomitant]
     Active Substance: ONDANSETRON
  21. SUCRALFATE [Concomitant]
     Active Substance: SUCRALFATE
  22. OMEPRAZOLE [Concomitant]
     Active Substance: OMEPRAZOLE
  23. TRAMADOL [Concomitant]
     Active Substance: TRAMADOL
  24. COLACE [Concomitant]
     Active Substance: DOCUSATE SODIUM
  25. LABETALOL [Concomitant]
     Active Substance: LABETALOL\LABETALOL HYDROCHLORIDE
  26. SIMETHICONE (DIMETHICONE) [Concomitant]
     Active Substance: DIMETHICONE
  27. METOCLOPRAMIDE HYDROCHLORIDE [Concomitant]
     Active Substance: METOCLOPRAMIDE HYDROCHLORIDE
  28. DULOXETINE HYDROCHLORIDE [Concomitant]
     Active Substance: DULOXETINE HYDROCHLORIDE
  29. AMLODIPINE BESYLATE [Concomitant]
     Active Substance: AMLODIPINE BESYLATE
  30. PANTOPRAZOLE SODIUM [Concomitant]
     Active Substance: PANTOPRAZOLE SODIUM
  31. ONDANSETRON HCL [Concomitant]
     Active Substance: ONDANSETRON HYDROCHLORIDE
  32. TRAMADOL HCL [Concomitant]
     Active Substance: TRAMADOL HYDROCHLORIDE
  33. LABETALOL HYDROCHLORIDE [Concomitant]
     Active Substance: LABETALOL HYDROCHLORIDE

REACTIONS (5)
  - Pancreatitis [Unknown]
  - Impaired gastric emptying [Unknown]
  - Abdominal pain upper [Unknown]
  - Unintentional medical device removal [Unknown]
  - Product use in unapproved indication [Unknown]

NARRATIVE: CASE EVENT DATE: 20220517
